FAERS Safety Report 11849879 (Version 1)
Quarter: 2015Q4

REPORT INFORMATION
  Report Type: Spontaneous
  Country: US (occurrence: US)
  Receive Date: 20151218
  Receipt Date: 20151218
  Transmission Date: 20160305
  Serious: No
  Sender: FDA-Public Use
  Company Number: US-CELGENEUS-USA-2015120117

PATIENT
  Sex: Female
  Weight: 99.88 kg

DRUGS (3)
  1. OTEZLA [Suspect]
     Active Substance: APREMILAST
     Indication: PSORIATIC ARTHROPATHY
     Dosage: 60 MILLIGRAM
     Route: 048
     Dates: start: 20150908
  2. LEVOTHYROXINE. [Concomitant]
     Active Substance: LEVOTHYROXINE
     Indication: THYROID THERAPY
     Route: 048
  3. BUSPIRONE [Concomitant]
     Active Substance: BUSPIRONE HYDROCHLORIDE
     Indication: ANXIETY
     Route: 048

REACTIONS (5)
  - Depression [Not Recovered/Not Resolved]
  - Crying [Not Recovered/Not Resolved]
  - Mood swings [Not Recovered/Not Resolved]
  - Hot flush [Not Recovered/Not Resolved]
  - Emotional disorder [Not Recovered/Not Resolved]

NARRATIVE: CASE EVENT DATE: 2015
